FAERS Safety Report 5308820-6 (Version None)
Quarter: 2007Q2

REPORT INFORMATION
  Report Type: 
  Country: None (occurrence: None)
  Receive Date: 20070426
  Receipt Date: 20070417
  Transmission Date: 20071010
  Serious: Yes (Other)
  Sender: FDA-Public Use
  Company Number: JP-PFIZER INC-2007025446

PATIENT
  Sex: Female
  Weight: 46 kg

DRUGS (5)
  1. NORVASC [Suspect]
     Indication: HYPERTENSION
     Dosage: DAILY DOSE:5MG
     Route: 048
     Dates: start: 20070301, end: 20070324
  2. MERISLON [Concomitant]
     Route: 048
  3. STOMIN A [Concomitant]
     Route: 048
     Dates: start: 20070301
  4. ATARAX [Concomitant]
     Route: 048
     Dates: start: 20070301
  5. GRANDAXIN [Concomitant]
     Route: 048
     Dates: start: 20070301

REACTIONS (2)
  - BLOOD CREATINE PHOSPHOKINASE INCREASED [None]
  - WHITE BLOOD CELL COUNT DECREASED [None]
